FAERS Safety Report 9365962 (Version 2)
Quarter: 2013Q3

REPORT INFORMATION
  Report Type: Spontaneous
  Country: US (occurrence: US)
  Receive Date: 20130625
  Receipt Date: 20130930
  Transmission Date: 20140515
  Serious: No
  Sender: FDA-Public Use
  Company Number: US-PFIZER INC-2013186539

PATIENT
  Age: 83 Year
  Sex: Female
  Weight: 65.76 kg

DRUGS (3)
  1. LIPITOR [Suspect]
     Indication: BLOOD CHOLESTEROL INCREASED
     Dosage: 40 MG, 1X/DAY
     Route: 048
  2. LIPITOR [Suspect]
     Dosage: 60 MG, 1X/DAY
     Route: 048
  3. PRAVASTATIN [Concomitant]
     Dosage: UNK

REACTIONS (3)
  - Muscular weakness [Unknown]
  - Hepatic enzyme increased [Unknown]
  - Body height decreased [Unknown]
